FAERS Safety Report 7067848-9 (Version None)
Quarter: 2010Q4

REPORT INFORMATION
  Report Type: 
  Country: None (occurrence: None)
  Receive Date: 20101028
  Receipt Date: 20101015
  Transmission Date: 20110411
  Serious: Yes (Hospitalization, Other)
  Sender: FDA-Public Use
  Company Number: US-PFIZER INC-2010132050

PATIENT
  Sex: Male
  Weight: 63.492 kg

DRUGS (8)
  1. LYRICA [Suspect]
     Indication: PAIN
     Dosage: 50 MG, 1X/DAY
     Route: 048
     Dates: start: 20100622
  2. LYRICA [Suspect]
     Dosage: 100 MG, 1X/DAY
     Dates: start: 20100101
  3. LYRICA [Suspect]
     Dosage: 150 MG, 1X/DAY
     Dates: end: 20100825
  4. ACYCLOVIR SODIUM [Concomitant]
     Dosage: UNK
  5. PROGRAF [Concomitant]
     Dosage: UNK
  6. CELL CEPT [Concomitant]
     Dosage: UNK
  7. BACTRIM [Concomitant]
     Dosage: UNK
  8. PRISTIQ [Concomitant]
     Dosage: UNK

REACTIONS (7)
  - ASPARTATE AMINOTRANSFERASE INCREASED [None]
  - ASTHENIA [None]
  - BLOOD ALKALINE PHOSPHATASE INCREASED [None]
  - BLOOD GLUCOSE INCREASED [None]
  - HAEMOLYSIS [None]
  - OVERDOSE [None]
  - WEIGHT DECREASED [None]
